FAERS Safety Report 8472453-3 (Version None)
Quarter: 2012Q2

REPORT INFORMATION
  Report Type: 
  Country: None (occurrence: None)
  Receive Date: 20120627
  Receipt Date: 20111111
  Transmission Date: 20120825
  Serious: No
  Sender: FDA-Public Use
  Company Number: US-AMGEN-USASP2011059417

PATIENT
  Sex: Male

DRUGS (8)
  1. LOSARTAN POTASSIUM [Concomitant]
     Dosage: UNK
  2. PLAVIX [Concomitant]
     Dosage: UNK
  3. RENVELA [Concomitant]
     Dosage: UNK
  4. DILTIAZEM HYDROCHOLORIDE [Concomitant]
  5. POTASSIUM ACETATE [Concomitant]
     Dosage: UNK
  6. EPOGEN [Suspect]
     Indication: HYPERPARATHYROIDISM PRIMARY
     Dosage: UNK
  7. SENSIPAR [Suspect]
     Indication: PRODUCT USED FOR UNKNOWN INDICATION
     Dosage: UNK
  8. VITAMIN D [Concomitant]
     Dosage: UNK

REACTIONS (2)
  - PAIN IN EXTREMITY [None]
  - FOOT DEFORMITY [None]
